FAERS Safety Report 8608155-X (Version None)
Quarter: 2012Q3

REPORT INFORMATION
  Report Type: 
  Country: None (occurrence: None)
  Receive Date: 20120821
  Receipt Date: 20110715
  Transmission Date: 20120928
  Serious: No
  Sender: FDA-Public Use
  Company Number: US-TEVA-290749USA

PATIENT

DRUGS (1)
  1. FLUCONAZOLE [Suspect]
     Dosage: 2 TABS
     Route: 048

REACTIONS (1)
  - DRUG INEFFECTIVE [None]
